FAERS Safety Report 11848644 (Version 5)
Quarter: 2016Q1

REPORT INFORMATION
  Report Type: Spontaneous
  Country: US (occurrence: US)
  Receive Date: 20151218
  Receipt Date: 20160224
  Transmission Date: 20160526
  Serious: No
  Sender: FDA-Public Use
  Company Number: US-009507513-1512USA007506

PATIENT

DRUGS (2)
  1. STERILE DILUENT [Suspect]
     Active Substance: WATER
     Dosage: UNK
  2. STERILE DILUENT [Suspect]
     Active Substance: WATER
     Dosage: UNKNOWN

REACTIONS (2)
  - Incorrect product storage [Unknown]
  - No adverse event [Unknown]
